FAERS Safety Report 18250193 (Version 2)
Quarter: 2020Q4

REPORT INFORMATION
  Report Type: Spontaneous
  Country: FR (occurrence: FR)
  Receive Date: 20200909
  Receipt Date: 20201015
  Transmission Date: 20210113
  Serious: Yes (Other)
  Sender: FDA-Public Use
  Company Number: FR-PURDUE-USA-2020-0165337

PATIENT
  Age: 35 Year
  Sex: Female

DRUGS (7)
  1. FENTANYL. [Suspect]
     Active Substance: FENTANYL
     Indication: PAIN
     Dosage: 75 MG, Q3D
     Route: 062
  2. HYDROCORTISONE. [Suspect]
     Active Substance: HYDROCORTISONE
     Indication: ADRENAL INSUFFICIENCY
     Dosage: UNK
     Route: 058
  3. PREDNISONE. [Suspect]
     Active Substance: PREDNISONE
     Indication: PRODUCT USED FOR UNKNOWN INDICATION
     Dosage: 2 MG IN THE MORNING AND 3 MG IN THE EVENING, THEN 5 MG IN THE
     Route: 065
  4. FLUDROCORTISONE [Suspect]
     Active Substance: FLUDROCORTISONE
     Indication: ADRENAL INSUFFICIENCY
     Route: 065
  5. DEHYDROEPIANDROSTERONE [Suspect]
     Active Substance: PRASTERONE
     Indication: ADRENAL INSUFFICIENCY
     Route: 065
  6. OXYCODONE HYDROCHLORIDE (SIMILAR TO NDA 22-272) [Suspect]
     Active Substance: OXYCODONE HYDROCHLORIDE
     Indication: PAIN
     Dosage: 60 MG, UNK
     Route: 048
  7. HYDROCORTISONE. [Suspect]
     Active Substance: HYDROCORTISONE
     Indication: ADRENAL INSUFFICIENCY
     Dosage: 2 TO 3 ADMINISTRATIONS PER DAY, 10 MG IN THE MORNING, 5 MG AT
     Route: 048

REACTIONS (7)
  - Drug ineffective [Unknown]
  - Asthenia [Recovering/Resolving]
  - Disturbance in attention [Unknown]
  - Dermatitis allergic [Recovering/Resolving]
  - Ankylosing spondylitis [Unknown]
  - Arthralgia [Unknown]
  - Weight increased [Unknown]
